FAERS Safety Report 6914752-X (Version None)
Quarter: 2010Q3

REPORT INFORMATION
  Report Type: 
  Country: None (occurrence: None)
  Receive Date: 20100809
  Receipt Date: 20100805
  Transmission Date: 20110219
  Serious: Yes (Hospitalization)
  Sender: FDA-Public Use
  Company Number: US-JNJFOC-20100708404

PATIENT
  Sex: Female

DRUGS (15)
  1. EXTRA STRENGTH TYLENOL [Suspect]
     Route: 065
  2. EXTRA STRENGTH TYLENOL [Suspect]
     Indication: PAIN IN EXTREMITY
     Route: 065
  3. CARDIZEM [Concomitant]
  4. ATROVENT [Concomitant]
  5. FLOVENT [Concomitant]
  6. ASPIRIN [Concomitant]
  7. AVAPRO [Concomitant]
  8. LORAZEPAM [Concomitant]
  9. SIMVASTATIN [Concomitant]
  10. VITAMIN TAB [Concomitant]
  11. VITAMIN D [Concomitant]
  12. MIRALAX [Concomitant]
  13. NASONEX [Concomitant]
  14. MAALOX [Concomitant]
  15. NEXIUM [Concomitant]

REACTIONS (2)
  - PANCREATITIS [None]
  - PRODUCT TASTE ABNORMAL [None]
